FAERS Safety Report 7723322-5 (Version None)
Quarter: 2011Q3

REPORT INFORMATION
  Report Type: 
  Country: None (occurrence: None)
  Receive Date: 20110901
  Receipt Date: 20110901
  Transmission Date: 20111222
  Serious: Yes (Hospitalization)
  Sender: FDA-Public Use
  Company Number: None

PATIENT
  Age: 59 Year
  Sex: Male
  Weight: 72.2 kg

DRUGS (8)
  1. VICODIN [Concomitant]
  2. ASPIRIN [Concomitant]
  3. EZETIMIBE/SIMVASTATIN [Concomitant]
  4. LOVENOX [Concomitant]
  5. DILAUDID [Concomitant]
  6. ENTEREG [Suspect]
     Indication: POSTOPERATIVE CARE
     Dosage: 12 MG
     Route: 048
     Dates: start: 20110701, end: 20110705
  7. AMLODIPINE BESYLATE AND BENAZEPRIL HCL [Concomitant]
  8. PROTONIX [Concomitant]

REACTIONS (1)
  - MYOCARDIAL INFARCTION [None]
